FAERS Safety Report 10027723 (Version 1)
Quarter: 2014Q1

REPORT INFORMATION
  Report Type: Spontaneous
  Country: DE (occurrence: None)
  Receive Date: 20140318
  Receipt Date: 20140318
  Transmission Date: 20141002
  Serious: Yes (Congenital Anomaly, Other)
  Sender: FDA-Public Use
  Company Number: IPC201403-000113

PATIENT
  Sex: Male

DRUGS (8)
  1. HYDROCHLOROTHIAZIDE (HYDROCHLOROTHIAZIDE) (HYDROCHLOROTHIAZIDE) [Suspect]
  2. RAMIPRIL (RAMIPRIL) (RAMIPRIL) [Suspect]
  3. TORASEMIDE [Suspect]
  4. PREDNISONE (PREDNISONE) (PREDNISONE) [Suspect]
  5. ESOMEPRAZOLE [Suspect]
  6. MYCOPHENOLATE [Suspect]
  7. CYCLOPHOSPHAMIDE (CYCLOPHOSPHAMIDE) (CYCLOPHOSPHAMIDE) [Suspect]
  8. CANDESARTAN [Suspect]

REACTIONS (11)
  - Benign congenital hypotonia [None]
  - Ventricular septal defect [None]
  - Atrial septal defect [None]
  - Patent ductus arteriosus [None]
  - Inguinal hernia [None]
  - Hydrocele [None]
  - Neonatal respiratory distress syndrome [None]
  - Congenital renal disorder [None]
  - Joint contracture [None]
  - Maternal drugs affecting foetus [None]
  - Premature baby [None]
